FAERS Safety Report 17858324 (Version 2)
Quarter: 2020Q2

REPORT INFORMATION
  Report Type: Spontaneous
  Country: US (occurrence: US)
  Receive Date: 20200604
  Receipt Date: 20200605
  Transmission Date: 20200714
  Serious: No
  Sender: FDA-Public Use
  Company Number: US-US WORLDMEDS, LLC-USW201906-001147

PATIENT
  Age: 56 Year
  Sex: Female
  Weight: 75.7 kg

DRUGS (13)
  1. GOCOVRI [Suspect]
     Active Substance: AMANTADINE
     Indication: DYSKINESIA
     Route: 048
     Dates: start: 20181002, end: 20181008
  2. NEUPRO [Concomitant]
     Active Substance: ROTIGOTINE
  3. BUSPIRONE [Concomitant]
     Active Substance: BUSPIRONE HYDROCHLORIDE
  4. GOCOVRI [Suspect]
     Active Substance: AMANTADINE
     Route: 048
     Dates: start: 20181009, end: 201901
  5. GOCOVRI [Suspect]
     Active Substance: AMANTADINE
     Route: 048
     Dates: start: 2019
  6. MELOXICAM. [Concomitant]
     Active Substance: MELOXICAM
  7. PREDNISONE. [Concomitant]
     Active Substance: PREDNISONE
  8. GOCOVRI [Suspect]
     Active Substance: AMANTADINE
     Route: 048
     Dates: start: 2019, end: 2019
  9. GOCOVRI [Suspect]
     Active Substance: AMANTADINE
     Route: 048
     Dates: start: 201901, end: 2019
  10. OMEPRAZOLE. [Concomitant]
     Active Substance: OMEPRAZOLE
  11. VITAMIN D3 [Concomitant]
     Active Substance: CHOLECALCIFEROL
  12. CARBIDOPA/LEVODOPA [Concomitant]
     Active Substance: CARBIDOPA\LEVODOPA
  13. APOKYN [Suspect]
     Active Substance: APOMORPHINE HYDROCHLORIDE
     Dates: start: 2018

REACTIONS (11)
  - Somnolence [Unknown]
  - Glaucoma [Not Recovered/Not Resolved]
  - Ocular hyperaemia [Unknown]
  - Vision blurred [Not Recovered/Not Resolved]
  - Dysphemia [Recovered/Resolved]
  - Upper respiratory tract infection [Recovered/Resolved]
  - Drug hypersensitivity [Unknown]
  - Vomiting [Recovered/Resolved]
  - Disorganised speech [Recovered/Resolved]
  - Pressure of speech [Recovered/Resolved]
  - Nausea [Recovered/Resolved]

NARRATIVE: CASE EVENT DATE: 201810
